FAERS Safety Report 6844743-9 (Version None)
Quarter: 2010Q3

REPORT INFORMATION
  Report Type: 
  Country: None (occurrence: None)
  Receive Date: 20100712
  Receipt Date: 20100630
  Transmission Date: 20110219
  Serious: Yes (Death, Hospitalization, Other)
  Sender: FDA-Public Use
  Company Number: 2010AC000170

PATIENT
  Age: 84 Year
  Sex: Female
  Weight: 75.7507 kg

DRUGS (13)
  1. DIGOXIN [Suspect]
     Dosage: PO
     Route: 048
     Dates: start: 20060301, end: 20080301
  2. DIGOXIN [Suspect]
     Indication: CARDIAC FAILURE CONGESTIVE
     Dosage: PO
     Route: 048
     Dates: start: 20060101, end: 20060305
  3. DIGOXIN [Suspect]
     Indication: CARDIAC FAILURE CONGESTIVE
     Dosage: 0.125 MG; PO
     Route: 048
     Dates: start: 20060306, end: 20071228
  4. DIGOXIN [Suspect]
     Dosage: 0.125 MG;QOD;PO
     Route: 048
     Dates: start: 20071231, end: 20080302
  5. ZANTAC [Concomitant]
  6. ZOCOR [Concomitant]
  7. HUMULIN INSULIN [Concomitant]
  8. ALLEGRA [Concomitant]
  9. COREG [Concomitant]
  10. ALDACTONE [Concomitant]
  11. BACTRIM [Concomitant]
  12. TETRACYCLINE [Concomitant]
  13. DEMADEX [Concomitant]

REACTIONS (35)
  - AORTIC VALVE INCOMPETENCE [None]
  - ASCITES [None]
  - ATELECTASIS [None]
  - BLOOD GLUCOSE INCREASED [None]
  - BLOOD POTASSIUM INCREASED [None]
  - BRAIN NATRIURETIC PEPTIDE INCREASED [None]
  - BREATH SOUNDS ABNORMAL [None]
  - CARDIAC FAILURE CHRONIC [None]
  - CARDIOACTIVE DRUG LEVEL INCREASED [None]
  - CARDIOMEGALY [None]
  - DEHYDRATION [None]
  - DEMENTIA ALZHEIMER'S TYPE [None]
  - DEPRESSION [None]
  - FATIGUE [None]
  - HEART RATE IRREGULAR [None]
  - HYPERKALAEMIA [None]
  - HYPOPHAGIA [None]
  - HYPOVOLAEMIA [None]
  - INJURY [None]
  - LETHARGY [None]
  - MALAISE [None]
  - MITRAL VALVE CALCIFICATION [None]
  - MITRAL VALVE INCOMPETENCE [None]
  - ORAL CANDIDIASIS [None]
  - ORAL PAIN [None]
  - OSTEOPENIA [None]
  - PEDAL PULSE DECREASED [None]
  - PETECHIAE [None]
  - PLEURAL EFFUSION [None]
  - PULMONARY HYPERTENSION [None]
  - RENAL FAILURE [None]
  - RIGHT ATRIAL DILATATION [None]
  - SMALL INTESTINAL OBSTRUCTION [None]
  - TRICUSPID VALVE INCOMPETENCE [None]
  - URTICARIA [None]
